FAERS Safety Report 24910236 (Version 1)
Quarter: 2025Q1

REPORT INFORMATION
  Report Type: Spontaneous
  Country: BR (occurrence: BR)
  Receive Date: 20250131
  Receipt Date: 20250131
  Transmission Date: 20250409
  Serious: Yes (Hospitalization, Other)
  Sender: UCB
  Company Number: BR-UCBSA-2025005430

PATIENT
  Age: 90 Year
  Sex: Female

DRUGS (8)
  1. VIMPAT [Suspect]
     Active Substance: LACOSAMIDE
     Indication: Epilepsy
     Route: 048
     Dates: start: 202410, end: 202410
  2. VIMPAT [Suspect]
     Active Substance: LACOSAMIDE
     Dosage: 125 MILLIGRAM, 2X/DAY (BID)
     Dates: start: 202410
  3. ELIQUIS [Concomitant]
     Active Substance: APIXABAN
     Indication: Product used for unknown indication
     Dosage: 1 DOSAGE FORM, 2X/DAY (BID)
  4. MOTILIUM [Concomitant]
     Active Substance: DOMPERIDONE
     Indication: Product used for unknown indication
     Dosage: 1 DOSAGE FORM, 3X/DAY (TID)
  5. LEVAMLODIPINE [Concomitant]
     Active Substance: LEVAMLODIPINE
     Indication: Hypertension
     Dosage: 1 DOSAGE FORM, ONCE DAILY (QD)
  6. ESOMEPRAZOLE [Concomitant]
     Active Substance: ESOMEPRAZOLE
     Indication: Product used for unknown indication
     Dosage: 1 DOSAGE FORM, ONCE DAILY (QD)
  7. IRON POLYMALTOSE [Concomitant]
     Active Substance: IRON POLYMALTOSE
     Indication: Product used for unknown indication
     Dosage: UNK, 2X/DAY (BID) (20 DROPS EVERY 12 HOURS)
  8. INSULIN NOS [Concomitant]
     Active Substance: INSULIN NOS
     Indication: Diabetes mellitus

REACTIONS (3)
  - Dementia [Not Recovered/Not Resolved]
  - Hospitalisation [Not Recovered/Not Resolved]
  - Off label use [Unknown]

NARRATIVE: CASE EVENT DATE: 20241001
